FAERS Safety Report 5041129-7 (Version None)
Quarter: 2006Q3

REPORT INFORMATION
  Report Type: 
  Country: None (occurrence: None)
  Receive Date: 20060703
  Receipt Date: 20060403
  Transmission Date: 20061208
  Serious: Yes (Hospitalization, Other)
  Sender: FDA-Public Use
  Company Number: DE-GILEAD-2006-0009417

PATIENT
  Sex: Male
  Weight: 61 kg

DRUGS (14)
  1. VIREAD [Suspect]
     Indication: HIV INFECTION
     Route: 048
     Dates: start: 20040701, end: 20050801
  2. VIDEX [Concomitant]
     Indication: HIV INFECTION
     Route: 048
  3. REYATAZ [Concomitant]
     Indication: HIV INFECTION
  4. NORVIR [Concomitant]
     Indication: HIV INFECTION
  5. COTRIM DS [Concomitant]
     Indication: ANTIBIOTIC PROPHYLAXIS
     Route: 048
  6. CEDUR RETARD [Concomitant]
     Indication: HYPERLIPIDAEMIA
     Route: 048
  7. ISMO RETARD [Concomitant]
     Indication: CORONARY ARTERY DISEASE
  8. LASIX [Concomitant]
     Indication: CARDIAC FAILURE
     Route: 048
  9. ASPIRIN [Concomitant]
     Indication: CORONARY ARTERY DISEASE
     Route: 048
  10. KALINOR SPARKLING TABLETS [Concomitant]
     Route: 048
  11. TEGRETOL [Concomitant]
     Route: 048
  12. ALNA [Concomitant]
     Indication: BENIGN PROSTATIC HYPERPLASIA
     Route: 048
  13. PROSCAR [Concomitant]
     Indication: BENIGN PROSTATIC HYPERPLASIA
     Route: 048
  14. ARTHROTEC [Concomitant]
     Indication: ARTERIOSCLEROSIS CORONARY ARTERY
     Route: 048

REACTIONS (7)
  - ASCITES [None]
  - DIABETES MELLITUS NON-INSULIN-DEPENDENT [None]
  - HEPATIC CIRRHOSIS [None]
  - METABOLIC ACIDOSIS [None]
  - OEDEMA [None]
  - POLYNEUROPATHY [None]
  - RENAL FAILURE ACUTE [None]
